FAERS Safety Report 14420180 (Version 1)
Quarter: 2018Q1

REPORT INFORMATION
  Report Type: Spontaneous
  Country: US (occurrence: US)
  Receive Date: 20180122
  Receipt Date: 20180122
  Transmission Date: 20180509
  Serious: Yes (Hospitalization)
  Sender: FDA-Public Use
  Company Number: US-PFIZER INC-2018026382

PATIENT
  Age: 2 Year
  Sex: Female
  Weight: 11.79 kg

DRUGS (1)
  1. GENOTROPIN [Suspect]
     Active Substance: SOMATROPIN
     Indication: GROWTH FAILURE

REACTIONS (3)
  - Pyrexia [Unknown]
  - Drug dose omission [Unknown]
  - Device use error [Unknown]
